FAERS Safety Report 12175438 (Version 4)
Quarter: 2016Q3

REPORT INFORMATION
  Report Type: Spontaneous
  Country: DK (occurrence: DK)
  Receive Date: 20160314
  Receipt Date: 20160805
  Transmission Date: 20161109
  Serious: Yes (Other)
  Sender: FDA-Public Use
  Company Number: DK-PFIZER INC-2016141606

PATIENT
  Age: 63 Year
  Sex: Female

DRUGS (1)
  1. DEPO-MEDROL [Suspect]
     Active Substance: METHYLPREDNISOLONE ACETATE
     Indication: INFLAMMATION
     Dosage: UNK
     Dates: start: 20140730, end: 20141010

REACTIONS (9)
  - Pain in extremity [Recovering/Resolving]
  - Tendon rupture [Recovering/Resolving]
  - Gait disturbance [Recovering/Resolving]
  - Limb discomfort [Unknown]
  - Joint instability [Unknown]
  - Spider vein [Unknown]
  - Walking aid user [Unknown]
  - Tenoplasty [Recovered/Resolved]
  - Balance disorder [Recovering/Resolving]

NARRATIVE: CASE EVENT DATE: 2015
